FAERS Safety Report 5323948-2 (Version None)
Quarter: 2007Q2

REPORT INFORMATION
  Report Type: 
  Country: None (occurrence: None)
  Receive Date: 20070220
  Receipt Date: 20070108
  Transmission Date: 20071010
  Serious: No
  Sender: FDA-Public Use
  Company Number: WAES 0701USA00929

PATIENT
  Age: 68 Year
  Sex: Male

DRUGS (8)
  1. JANUVIA [Suspect]
     Indication: DIABETES MELLITUS
     Dosage: 100MG;DAILY;PO
     Route: 048
     Dates: start: 20070104
  2. ATACAND [Concomitant]
  3. AVANDAMET [Concomitant]
  4. FLOMAX [Concomitant]
  5. LIPITOR [Concomitant]
  6. NEXIUM [Concomitant]
  7. STARLIX [Concomitant]
  8. ENALAPRIL MALEATE [Concomitant]

REACTIONS (2)
  - ABNORMAL SENSATION IN EYE [None]
  - OCULAR DISCOMFORT [None]
